FAERS Safety Report 20100066 (Version 5)
Quarter: 2022Q1

REPORT INFORMATION
  Report Type: Spontaneous
  Country: US (occurrence: US)
  Receive Date: 20211123
  Receipt Date: 20220113
  Transmission Date: 20220424
  Serious: Yes (Hospitalization)
  Sender: FDA-Public Use
  Company Number: US-ALNYLAM PHARMACEUTICALS, INC.-ALN-2021-003055

PATIENT

DRUGS (5)
  1. ONPATTRO [Suspect]
     Active Substance: PATISIRAN SODIUM
     Indication: Neuropathy peripheral
     Dosage: 0.3 MILLIGRAM/KILOGRAM, Q3W
     Route: 042
     Dates: start: 20211109
  2. DEXAMETHASONE [Concomitant]
     Active Substance: DEXAMETHASONE
     Indication: Prophylaxis
     Dosage: 10 MILLIGRAM
     Route: 042
     Dates: start: 20211109
  3. DIPHENHYDRAMINE [Concomitant]
     Active Substance: DIPHENHYDRAMINE
     Indication: Prophylaxis
     Dosage: 50 MILLIGRAM
     Route: 042
     Dates: start: 20211109
  4. FAMOTIDINE [Concomitant]
     Active Substance: FAMOTIDINE
     Indication: Prophylaxis
     Dosage: 20 MILLIGRAM
     Route: 042
     Dates: start: 20211109
  5. ACETAMINOPHEN [Concomitant]
     Active Substance: ACETAMINOPHEN
     Indication: Prophylaxis
     Dosage: 650 MILLIGRAM
     Route: 048
     Dates: start: 20211109

REACTIONS (11)
  - Urinary tract infection [Recovered/Resolved]
  - Nasopharyngitis [Recovered/Resolved]
  - Pain [Recovered/Resolved]
  - Rhinorrhoea [Recovered/Resolved]
  - Asthenia [Recovered/Resolved]
  - Dehydration [Recovered/Resolved]
  - Off label use [Unknown]
  - Infusion related reaction [Recovered/Resolved]
  - Arthralgia [Recovered/Resolved]
  - Neck pain [Recovered/Resolved]
  - Tachycardia [Recovered/Resolved]

NARRATIVE: CASE EVENT DATE: 20111110
